FAERS Safety Report 8579899-3 (Version None)
Quarter: 2012Q3

REPORT INFORMATION
  Report Type: 
  Country: None (occurrence: None)
  Receive Date: 20120808
  Receipt Date: 20120802
  Transmission Date: 20120928
  Serious: Yes (Other)
  Sender: FDA-Public Use
  Company Number: PHHY2012TW066832

PATIENT
  Age: 57 Year
  Sex: Female

DRUGS (2)
  1. TEICOPLANIN [Suspect]
     Indication: BACTERIAL INFECTION
     Dosage: 400 MG, UNK
  2. VANCOMYCIN [Suspect]
     Indication: BACTERIAL INFECTION
     Dosage: 2.25 MG

REACTIONS (4)
  - NEUTROPENIA [None]
  - EOSINOPHILIA [None]
  - LEUKOPENIA [None]
  - DRUG HYPERSENSITIVITY [None]
